FAERS Safety Report 4775974-X (Version None)
Quarter: 2005Q3

REPORT INFORMATION
  Report Type: 
  Country: None (occurrence: None)
  Receive Date: 20050914
  Receipt Date: 20050317
  Transmission Date: 20060218
  Serious: Yes (Hospitalization)
  Sender: FDA-Public Use
  Company Number: 163-20785-05030506

PATIENT
  Age: 42 Year
  Sex: Male

DRUGS (28)
  1. THALOMID [Suspect]
     Indication: MULTIPLE MYELOMA
     Dosage: ORAL
     Route: 048
     Dates: start: 20041113
  2. THALOMID [Suspect]
     Indication: MULTIPLE MYELOMA
     Dosage: ORAL
     Route: 048
     Dates: start: 20041222
  3. VELCADE [Suspect]
     Indication: MULTIPLE MYELOMA
     Dosage: 2 MG, DAILY, INTRAVENOUS
     Route: 042
     Dates: start: 20041110, end: 20041110
  4. VELCADE [Suspect]
     Indication: MULTIPLE MYELOMA
     Dosage: 2 MG, DAILY, INTRAVENOUS
     Route: 042
     Dates: start: 20041113, end: 20041113
  5. VELCADE [Suspect]
     Indication: MULTIPLE MYELOMA
     Dosage: 2 MG, DAILY, INTRAVENOUS
     Route: 042
     Dates: start: 20041117, end: 20041117
  6. VELCADE [Suspect]
     Indication: MULTIPLE MYELOMA
     Dosage: 2 MG, DAILY, INTRAVENOUS
     Route: 042
     Dates: start: 20041120, end: 20041120
  7. VELCADE [Suspect]
     Indication: MULTIPLE MYELOMA
     Dosage: 2 MG, DAILY, INTRAVENOUS
     Route: 042
     Dates: start: 20041222
  8. DEXAMETHASONE [Suspect]
     Indication: MULTIPLE MYELOMA
     Dates: start: 20041113
  9. DEXAMETHASONE [Suspect]
     Indication: MULTIPLE MYELOMA
     Dates: start: 20041222
  10. ADRIAMYCIN PFS [Suspect]
     Indication: MULTIPLE MYELOMA
     Dates: start: 20041113
  11. ADRIAMYCIN PFS [Suspect]
     Indication: MULTIPLE MYELOMA
     Dates: start: 20041222
  12. CYCLOPHOSPHAMIDE [Suspect]
     Indication: MULTIPLE MYELOMA
     Dates: start: 20041113
  13. CYCLOPHOSPHAMIDE [Suspect]
     Indication: MULTIPLE MYELOMA
     Dates: start: 20041222
  14. ETOPOSIDE [Suspect]
     Indication: MULTIPLE MYELOMA
     Dates: start: 20041113
  15. ETOPOSIDE [Suspect]
     Indication: MULTIPLE MYELOMA
     Dates: start: 20041222
  16. CISPLATIN [Suspect]
     Indication: MULTIPLE MYELOMA
     Dates: start: 20041222
  17. MELPHALAN (MELPHALAN) [Suspect]
     Indication: MULTIPLE MYELOMA
     Dosage: INTRAVENOUS
     Route: 042
     Dates: start: 20050202
  18. MELPHALAN (MELPHALAN) [Suspect]
     Indication: MULTIPLE MYELOMA
     Dosage: INTRAVENOUS
     Route: 042
     Dates: start: 20050410
  19. ACYCLOVIR [Concomitant]
  20. FOLIC ACID [Concomitant]
  21. PANTOPRAZOLE SODIUM [Concomitant]
  22. EPOETIN (EPOETIN ALFA) [Concomitant]
  23. G-CSF (GRANULOCYTE COLONY STIMULATING FACTOR) [Concomitant]
  24. METOPROLOL ER (METOPROLOL TARTRATE) [Concomitant]
  25. DOCUSATE (DOCUSATE) [Concomitant]
  26. SENNA (SENNA) [Concomitant]
  27. OXYCONTIN SR (OXYCODONE HYDROCHLORIDE) [Concomitant]
  28. OXYCODONE HCL [Concomitant]

REACTIONS (14)
  - ABDOMINAL PAIN [None]
  - ANOREXIA [None]
  - ASTHENIA [None]
  - COLITIS [None]
  - DIARRHOEA [None]
  - ESCHERICHIA BACTERAEMIA [None]
  - FEBRILE NEUTROPENIA [None]
  - HYPERCALCAEMIA [None]
  - HYPERTENSION [None]
  - NAUSEA [None]
  - NEUTROPENIA [None]
  - PYREXIA [None]
  - RENAL FAILURE ACUTE [None]
  - VOMITING [None]
